FAERS Safety Report 7522168-0 (Version None)
Quarter: 2011Q2

REPORT INFORMATION
  Report Type: 
  Country: None (occurrence: None)
  Receive Date: 20110603
  Receipt Date: 20110329
  Transmission Date: 20111010
  Serious: No
  Sender: FDA-Public Use
  Company Number: US-BAYER-2011-029375

PATIENT
  Age: 53 Year
  Sex: Female
  Weight: 65.76 kg

DRUGS (4)
  1. ALEVE (CAPLET) [Suspect]
     Dosage: DAILY DOSE 1100 MG
     Route: 048
     Dates: start: 20110301, end: 20110301
  2. LUDEN'S COUGH DROPS [Concomitant]
  3. ALEVE (CAPLET) [Suspect]
     Dosage: 440 MG, BID
     Route: 048
     Dates: start: 20110301, end: 20110301
  4. ALEVE (CAPLET) [Suspect]
     Dosage: DAILY DOSE 440 MG
     Route: 048
     Dates: start: 20110301, end: 20110301

REACTIONS (1)
  - SWELLING FACE [None]
